FAERS Safety Report 19626125 (Version 1)
Quarter: 2021Q3

REPORT INFORMATION
  Report Type: Spontaneous
  Country: ES (occurrence: ES)
  Receive Date: 20210729
  Receipt Date: 20210729
  Transmission Date: 20211014
  Serious: Yes (Hospitalization)
  Sender: FDA-Public Use
  Company Number: ES-TEVA-2021-ES-1937447

PATIENT
  Age: 56 Year
  Sex: Male

DRUGS (2)
  1. DESVENLAFAXINA (8296A) [Suspect]
     Active Substance: DESVENLAFAXINE
     Indication: DEPRESSION
     Dosage: 1 DOSAGE FORMS DAILY; 1?0?0
     Route: 048
     Dates: start: 20210318, end: 20210615
  2. ARIPIPRAZOL (2933A) [Suspect]
     Active Substance: ARIPIPRAZOLE
     Indication: DEPRESSION
     Dosage: 10 MILLIGRAM DAILY; 1?0?0
     Route: 048
     Dates: start: 20210526, end: 20210615

REACTIONS (1)
  - Reversible cerebral vasoconstriction syndrome [Recovered/Resolved with Sequelae]

NARRATIVE: CASE EVENT DATE: 20210607
